FAERS Safety Report 24225228 (Version 1)
Quarter: 2024Q3

REPORT INFORMATION
  Report Type: Spontaneous
  Country: DE (occurrence: DE)
  Receive Date: 20240820
  Receipt Date: 20240820
  Transmission Date: 20241017
  Serious: Yes (Death)
  Sender: ROCHE
  Company Number: None

PATIENT
  Age: 66 Year
  Sex: Male

DRUGS (1)
  1. TOCILIZUMAB [Suspect]
     Active Substance: TOCILIZUMAB
     Indication: Rheumatoid arthritis
     Dosage: 162 MG S.C. WEEKLY
     Route: 058
     Dates: start: 20201209, end: 20230216

REACTIONS (2)
  - Soft tissue infection [Fatal]
  - Septic shock [Fatal]

NARRATIVE: CASE EVENT DATE: 20220215
